FAERS Safety Report 14493261 (Version 2)
Quarter: 2018Q1

REPORT INFORMATION
  Report Type: Report from Study
  Country: GB (occurrence: GB)
  Receive Date: 20180206
  Receipt Date: 20180313
  Transmission Date: 20180509
  Serious: Yes (Hospitalization, Other)
  Sender: FDA-Public Use
  Company Number: GB-JNJFOC-20180200608

PATIENT
  Sex: Female

DRUGS (1)
  1. SIMPONI [Suspect]
     Active Substance: GOLIMUMAB
     Indication: PRODUCT USED FOR UNKNOWN INDICATION
     Route: 058
     Dates: start: 20180123

REACTIONS (6)
  - Lower respiratory tract infection [Unknown]
  - Vaginal abscess [Unknown]
  - Abdominal pain [Unknown]
  - Sepsis [Unknown]
  - Depressed mood [Recovering/Resolving]
  - Headache [Unknown]

NARRATIVE: CASE EVENT DATE: 2018
